FAERS Safety Report 18522483 (Version 1)
Quarter: 2020Q4

REPORT INFORMATION
  Report Type: Spontaneous
  Country: US (occurrence: US)
  Receive Date: 20201119
  Receipt Date: 20201119
  Transmission Date: 20210114
  Serious: Yes (Other)
  Sender: FDA-Public Use
  Company Number: US-ASTRAZENECA-2020SF52621

PATIENT
  Age: 829 Month
  Sex: Male
  Weight: 86.2 kg

DRUGS (17)
  1. SYMBICORT [Suspect]
     Active Substance: BUDESONIDE\FORMOTEROL FUMARATE DIHYDRATE
     Indication: ASTHMA
     Dosage: 160MCG/4.5MCG, TWO PUFFS TWICE DAILY
     Route: 055
  2. LATANOPROST. [Concomitant]
     Active Substance: LATANOPROST
     Indication: GLAUCOMA
     Route: 047
  3. CALCIUM PLUS D3 [Concomitant]
     Indication: OSTEOPENIA
     Route: 048
  4. VITAMIN D3 [Concomitant]
     Active Substance: CHOLECALCIFEROL
     Indication: IMMUNE ENHANCEMENT THERAPY
     Route: 048
  5. FLOMAX [Concomitant]
     Active Substance: TAMSULOSIN HYDROCHLORIDE
     Indication: PROSTATIC DISORDER
     Route: 048
  6. MAGNESIUM [Concomitant]
     Active Substance: MAGNESIUM
     Indication: MUSCLE SPASMS
     Route: 048
  7. TUMERIC [Concomitant]
     Active Substance: HERBALS\TURMERIC
     Indication: ARTHRITIS
     Route: 048
  8. ZINC. [Concomitant]
     Active Substance: ZINC
     Indication: IMMUNE SYSTEM DISORDER
     Route: 048
  9. LUMIGAN [Concomitant]
     Active Substance: BIMATOPROST
     Indication: GLAUCOMA
  10. PROAIR HFA [Concomitant]
     Active Substance: ALBUTEROL SULFATE
     Indication: ASTHMA
     Dosage: 90 UG TWO PUFFS FOUR TIMES A DAY AS NEEDED
     Route: 055
  11. SINGULAIR [Concomitant]
     Active Substance: MONTELUKAST SODIUM
     Indication: ASTHMA
     Route: 048
  12. VITAMIN C [Concomitant]
     Active Substance: ASCORBIC ACID
     Indication: IMMUNE ENHANCEMENT THERAPY
     Route: 048
  13. FISH OIL [Concomitant]
     Active Substance: FISH OIL
     Indication: CARDIAC DISORDER
     Route: 048
  14. SAW PALMETTO [Concomitant]
     Active Substance: HERBALS\SAW PALMETTO
     Indication: PROSTATIC DISORDER
     Route: 048
  15. MULTIVITAMIN [Concomitant]
     Active Substance: VITAMINS
     Indication: VITAMIN SUPPLEMENTATION
     Dosage: DAILY
     Route: 048
  16. POTASSIUM [Concomitant]
     Active Substance: POTASSIUM
     Indication: MUSCLE SPASMS
     Route: 048
  17. CURCUMIN [Concomitant]
     Active Substance: CURCUMIN
     Indication: ARTHRITIS
     Route: 048

REACTIONS (9)
  - Incorrect dose administered by device [Recovered/Resolved]
  - Neuropathy peripheral [Not Recovered/Not Resolved]
  - Osteopenia [Unknown]
  - Device delivery system issue [Unknown]
  - Intentional device misuse [Unknown]
  - Wrong technique in device usage process [Unknown]
  - Intervertebral disc protrusion [Recovered/Resolved]
  - Glaucoma [Not Recovered/Not Resolved]
  - Muscle spasms [Unknown]

NARRATIVE: CASE EVENT DATE: 202009
